FAERS Safety Report 9844946 (Version 1)
Quarter: 2014Q1

REPORT INFORMATION
  Report Type: Spontaneous
  Country: US (occurrence: US)
  Receive Date: 20140127
  Receipt Date: 20140127
  Transmission Date: 20141002
  Serious: No
  Sender: FDA-Public Use
  Company Number: US-BAYER-2014-013347

PATIENT
  Age: 79 Year
  Sex: Female
  Weight: 68.03 kg

DRUGS (11)
  1. ALEVE TABLET [Suspect]
     Indication: PAIN
     Dosage: 2 DF, QD
     Route: 048
     Dates: start: 2013, end: 20140120
  2. METFORMIN [Concomitant]
  3. PREMARIN [Concomitant]
  4. CENTRUM SILVER [Concomitant]
  5. POTASSIUM [POTASSIUM] [Concomitant]
  6. BENICAR HCT [Concomitant]
  7. NITROFURANTOIN [Concomitant]
  8. VITAMIN D [Concomitant]
  9. ACIDOPHILUS [Concomitant]
  10. AMLODIPINE [Concomitant]
  11. CARVEDILOL [Concomitant]

REACTIONS (1)
  - Incorrect drug administration duration [None]
